FAERS Safety Report 19984963 (Version 1)
Quarter: 2021Q4

REPORT INFORMATION
  Report Type: Spontaneous
  Country: US (occurrence: US)
  Receive Date: 20211022
  Receipt Date: 20211022
  Transmission Date: 20220303
  Serious: Yes (Hospitalization)
  Sender: FDA-Public Use
  Company Number: US-DRREDDYS-LIT/USA/21/0142797

PATIENT
  Age: 64 Year
  Sex: Male

DRUGS (3)
  1. TADALAFIL [Suspect]
     Active Substance: TADALAFIL
     Indication: Pulmonary arterial hypertension
  2. TREPROSTINIL [Suspect]
     Active Substance: TREPROSTINIL
     Indication: Pulmonary arterial hypertension
     Dosage: REACHING TREPROSTINIL DOSE TO 28 NG/KG/M
     Route: 042
  3. AMBRISENTAN [Suspect]
     Active Substance: AMBRISENTAN
     Indication: Pulmonary arterial hypertension

REACTIONS (1)
  - Drug ineffective [Unknown]
